FAERS Safety Report 25278665 (Version 1)
Quarter: 2025Q2

REPORT INFORMATION
  Report Type: Spontaneous
  Country: GB (occurrence: GB)
  Receive Date: 20250507
  Receipt Date: 20250507
  Transmission Date: 20250716
  Serious: Yes (Hospitalization, Other)
  Sender: AUROBINDO
  Company Number: GB-MHRA-MED-202504221216122700-RVFZB

PATIENT
  Sex: Male
  Weight: 111 kg

DRUGS (1)
  1. TERBINAFINE [Suspect]
     Active Substance: TERBINAFINE
     Indication: Adverse drug reaction
     Route: 065

REACTIONS (1)
  - Hepatic enzyme [Recovering/Resolving]

NARRATIVE: CASE EVENT DATE: 20250417
